FAERS Safety Report 13897697 (Version 2)
Quarter: 2017Q3

REPORT INFORMATION
  Report Type: Spontaneous
  Country: US (occurrence: US)
  Receive Date: 20170823
  Receipt Date: 20170915
  Transmission Date: 20171127
  Serious: No
  Sender: FDA-Public Use
  Company Number: US-PFIZER INC-2017358063

PATIENT
  Age: 51 Year
  Sex: Female
  Weight: 71.21 kg

DRUGS (1)
  1. HYDROCORTISONE ACETATE. [Suspect]
     Active Substance: HYDROCORTISONE ACETATE
     Dosage: 2.5

REACTIONS (4)
  - Rash macular [Not Recovered/Not Resolved]
  - Blister [Not Recovered/Not Resolved]
  - Skin fragility [Not Recovered/Not Resolved]
  - Skin exfoliation [Not Recovered/Not Resolved]
